FAERS Safety Report 9418683 (Version 1)
Quarter: 2013Q3

REPORT INFORMATION
  Report Type: Spontaneous
  Country: US (occurrence: US)
  Receive Date: 20130725
  Receipt Date: 20130725
  Transmission Date: 20140515
  Serious: Yes (Other)
  Sender: FDA-Public Use
  Company Number: US-JNJCP-30000171555

PATIENT
  Sex: Male
  Weight: 108 kg

DRUGS (8)
  1. NEUTROGENA WET SKIN SUNBLOCK SPRAY SPF85+ [Suspect]
     Indication: PROPHYLAXIS
     Dosage: SPRAYED OVER UPPER BODY, TWICE EVERY EIGHT HOURS
     Route: 061
  2. AMLODITINE [Concomitant]
     Indication: HYPERTENSION
     Dosage: 10MG PER DAY SINCE THREE YEARS
  3. BENAZETRIL [Concomitant]
     Indication: HYPERTENSION
  4. KLOR-CON [Concomitant]
     Indication: BLOOD POTASSIUM ABNORMAL
     Dosage: 10MG PER DAY, SINCE ONE YEAR
  5. TAMSULOSIN [Concomitant]
     Indication: URINARY TRACT DISORDER
     Dosage: 0.4 MG PER DAY, SINCE TWO YEARS
  6. WARFARIN [Concomitant]
     Indication: COAGULOPATHY
     Dosage: 5MG PER DAY, SINCE ONE AND HALF YEAR
  7. AMLODIPINE [Concomitant]
     Indication: HYPERTENSION
     Dosage: 10MG PER DAY, SINCE THREE YEARS
  8. BENZAPRIL [Concomitant]
     Indication: HYPERTENSION
     Dosage: 40MG PER DAY, SINCE THREE YEARS

REACTIONS (4)
  - Application site vesicles [Recovered/Resolved]
  - Application site rash [Recovered/Resolved]
  - Sunburn [Recovered/Resolved]
  - Application site pruritus [Recovered/Resolved]
